FAERS Safety Report 10093058 (Version 1)
Quarter: 2014Q2

REPORT INFORMATION
  Report Type: Spontaneous
  Country: US (occurrence: US)
  Receive Date: 20140421
  Receipt Date: 20140421
  Transmission Date: 20141212
  Serious: No
  Sender: FDA-Public Use
  Company Number: US-SA-2013SA105651

PATIENT
  Age: 82 Year
  Sex: Female

DRUGS (6)
  1. ALLEGRA [Suspect]
     Indication: PRURITUS
     Route: 048
  2. ANTIHYPERTENSIVES [Suspect]
     Route: 065
  3. CALCIUM [Concomitant]
  4. VITAMIN D [Concomitant]
  5. VITAMIN C [Concomitant]
  6. FISH OIL [Concomitant]

REACTIONS (3)
  - Condition aggravated [Not Recovered/Not Resolved]
  - Therapeutic response decreased [Unknown]
  - Extra dose administered [Unknown]
